FAERS Safety Report 5600674-3 (Version None)
Quarter: 2008Q1

REPORT INFORMATION
  Report Type: 
  Country: None (occurrence: None)
  Receive Date: 20080123
  Receipt Date: 20080111
  Transmission Date: 20080703
  Serious: Yes (Death)
  Sender: FDA-Public Use
  Company Number: US-PFIZER INC-2008003625

PATIENT
  Age: 19 Year
  Sex: Female

DRUGS (1)
  1. LYRICA [Suspect]
     Indication: EPILEPSY

REACTIONS (1)
  - SUDDEN DEATH [None]
